FAERS Safety Report 5688927-4 (Version None)
Quarter: 2008Q1

REPORT INFORMATION
  Report Type: 
  Country: None (occurrence: None)
  Receive Date: 20080331
  Receipt Date: 20080325
  Transmission Date: 20080703
  Serious: Yes (Hospitalization)
  Sender: FDA-Public Use
  Company Number: FR-JNJFOC-20080305549

PATIENT
  Sex: Male
  Weight: 24 kg

DRUGS (4)
  1. RISPERDAL [Suspect]
     Indication: ABNORMAL BEHAVIOUR
     Route: 048
     Dates: start: 20070423, end: 20070426
  2. LEPTICUR [Suspect]
     Indication: EXTRAPYRAMIDAL DISORDER
     Route: 048
  3. LEPTICUR [Suspect]
     Route: 050
  4. TERCIAN [Concomitant]
     Indication: ABNORMAL BEHAVIOUR
     Route: 048

REACTIONS (3)
  - CONFUSIONAL STATE [None]
  - DISORIENTATION [None]
  - HALLUCINATIONS, MIXED [None]
